FAERS Safety Report 5893885-3 (Version None)
Quarter: 2008Q3

REPORT INFORMATION
  Report Type: 
  Country: None (occurrence: None)
  Receive Date: 20080923
  Receipt Date: 20080618
  Transmission Date: 20090109
  Serious: No
  Sender: FDA-Public Use
  Company Number: US-ASTRAZENECA-2007UW27336

PATIENT
  Age: 539 Month
  Sex: Female
  Weight: 86.8 kg

DRUGS (5)
  1. SEROQUEL [Suspect]
     Indication: SLEEP DISORDER
     Dosage: VARIOUS DOSES INCLUDING BUT NOT LIMITED TO 25 MG, 100 MG, 200 MG, AND 300 MG
     Route: 048
     Dates: start: 20020701, end: 20060301
  2. ABILIFY [Concomitant]
     Dates: start: 20070401
  3. SOLIAN [Concomitant]
     Dates: start: 20060101
  4. ZYPREXA [Concomitant]
     Dosage: VARIOUS DOSES INCLUDING BUT NOT LIMITED TO 15 MG
     Dates: start: 20010601
  5. LEXAPRO [Concomitant]
     Dosage: VARIOUS DOSES INCLUDING BUT NOT LIMITED TO 20 MG
     Dates: start: 20030201

REACTIONS (4)
  - BLOOD CHOLESTEROL INCREASED [None]
  - DIABETES MELLITUS [None]
  - OBESITY [None]
  - ROAD TRAFFIC ACCIDENT [None]
